FAERS Safety Report 7126533-5 (Version None)
Quarter: 2010Q4

REPORT INFORMATION
  Report Type: 
  Country: None (occurrence: None)
  Receive Date: 20101129
  Receipt Date: 20101122
  Transmission Date: 20110411
  Serious: Yes (Hospitalization, Other)
  Sender: FDA-Public Use
  Company Number: BR-ABBOTT-10P-020-0646278-00

PATIENT
  Sex: Male
  Weight: 118 kg

DRUGS (4)
  1. HUMIRA [Suspect]
     Indication: PSORIATIC ARTHROPATHY
     Route: 058
     Dates: start: 20090801, end: 20100101
  2. PURAN T4 [Concomitant]
     Indication: THYROID DISORDER
     Route: 048
  3. METFORMIN [Concomitant]
     Indication: DIABETES MELLITUS
     Route: 048
  4. SIMVASTATIN [Concomitant]
     Indication: BLOOD CHOLESTEROL ABNORMAL
     Route: 048

REACTIONS (7)
  - BLOOD URINE PRESENT [None]
  - DEVICE RELATED INFECTION [None]
  - NEPHROLITHIASIS [None]
  - PYREXIA [None]
  - PYURIA [None]
  - TREMOR [None]
  - WEIGHT DECREASED [None]
